FAERS Safety Report 10529500 (Version 4)
Quarter: 2014Q4

REPORT INFORMATION
  Report Type: Spontaneous
  Country: NL (occurrence: NL)
  Receive Date: 20141021
  Receipt Date: 20141127
  Transmission Date: 20150528
  Serious: No
  Sender: FDA-Public Use
  Company Number: NL-009507513-1410NLD000678

PATIENT
  Age: 26 Year
  Sex: Female

DRUGS (1)
  1. IMPLANON [Suspect]
     Active Substance: ETONOGESTREL
     Dosage: UNK
     Route: 030
     Dates: start: 20140429

REACTIONS (7)
  - Device dislocation [Not Recovered/Not Resolved]
  - Limb discomfort [Unknown]
  - Menorrhagia [Not Recovered/Not Resolved]
  - Vulvovaginal mycotic infection [Unknown]
  - Contusion [Unknown]
  - Incorrect route of drug administration [Unknown]
  - Device deployment issue [Not Recovered/Not Resolved]

NARRATIVE: CASE EVENT DATE: 2014
